FAERS Safety Report 24800787 (Version 1)
Quarter: 2025Q1

REPORT INFORMATION
  Report Type: Spontaneous
  Country: US (occurrence: None)
  Receive Date: 20250102
  Receipt Date: 20250102
  Transmission Date: 20250408
  Serious: Yes (Life-Threatening, Hospitalization, Other)
  Sender: FDA-CTU
  Company Number: None

PATIENT
  Age: 85 Year
  Sex: Male

DRUGS (1)
  1. DOCETAXEL [Suspect]
     Active Substance: DOCETAXEL
     Indication: Prostate cancer
     Route: 041
     Dates: start: 20241210, end: 20241210

REACTIONS (8)
  - Cardiac arrest [None]
  - Infusion related reaction [None]
  - Flushing [None]
  - Dizziness [None]
  - Loss of consciousness [None]
  - Skin discolouration [None]
  - Pulse absent [None]
  - Unresponsive to stimuli [None]

NARRATIVE: CASE EVENT DATE: 20241210
